FAERS Safety Report 7821531-8 (Version None)
Quarter: 2011Q4

REPORT INFORMATION
  Report Type: 
  Country: None (occurrence: None)
  Receive Date: 20111018
  Receipt Date: 20111012
  Transmission Date: 20120403
  Serious: Yes (Other)
  Sender: FDA-Public Use
  Company Number: US-ABBOTT-11P-163-0863611-00

PATIENT
  Age: 51 Year
  Sex: Female

DRUGS (6)
  1. HUMIRA [Suspect]
     Indication: CROHN'S DISEASE
     Dates: start: 20110820, end: 20110820
  2. HUMIRA [Suspect]
     Dates: start: 20110903, end: 20110903
  3. FLAGYL [Concomitant]
     Indication: PRODUCT USED FOR UNKNOWN INDICATION
  4. PREDNISONE [Concomitant]
     Indication: PRODUCT USED FOR UNKNOWN INDICATION
  5. HUMIRA [Suspect]
     Dates: start: 20110917, end: 20110917
  6. HUMIRA [Suspect]

REACTIONS (4)
  - OBSTRUCTION GASTRIC [None]
  - DRUG INEFFECTIVE [None]
  - GASTRITIS [None]
  - GASTROINTESTINAL OEDEMA [None]
